FAERS Safety Report 5990377-8 (Version None)
Quarter: 2008Q4

REPORT INFORMATION
  Report Type: 
  Country: None (occurrence: None)
  Receive Date: 20081210
  Receipt Date: 20081126
  Transmission Date: 20090506
  Serious: Yes (Other)
  Sender: FDA-Public Use
  Company Number: GB-DEXPHARM-20081383

PATIENT
  Age: 76 Year
  Sex: Male

DRUGS (9)
  1. OMEPRAZOLE [Suspect]
     Dosage: 20 MG MILLIGRAM(S), 1 IN 1 DAY
  2. AMLODIPINE [Suspect]
     Dosage: 5 MG MILLIGRAM(S), 1 IN 1 DAY
  3. SIMVASTATIN [Suspect]
     Dosage: 20 MG MILLIGRAM(S), 1 IN 1 DAY
  4. RAMIPRIL [Suspect]
     Dosage: 2.5 MG MILLIGRAM(S), 1 IN 1 DAY
  5. TAMSULOSIN HCL [Suspect]
     Dosage: 500 MG MILLIGRAM(S), 1 IN 1 DAY
  6. THEOPHYLLINE [Suspect]
     Dosage: 300 MG MILLIGRAM(S), 1 IN 1 DAY
  7. TIOTROPIUM BROMIDE [Suspect]
     Dosage: 1 DF DOSAGE FORM, 1 IN 1 DAY
  8. SERETIDE [Suspect]
     Indication: ASTHMA
     Dosage: 1 DF DOSAGE FORM, 2 RESPIRATORY (INHALATION) ASTHMA IN 1 DAY
     Dates: start: 20081208
  9. VENTOLIN [Suspect]
     Indication: ASTHMA

REACTIONS (4)
  - ASTHMA [None]
  - CEREBRAL ISCHAEMIA [None]
  - MEMORY IMPAIRMENT [None]
  - TRANSIENT ISCHAEMIC ATTACK [None]
